FAERS Safety Report 6184239-3 (Version None)
Quarter: 2009Q2

REPORT INFORMATION
  Report Type: 
  Country: None (occurrence: None)
  Receive Date: 20090508
  Receipt Date: 20090504
  Transmission Date: 20091009
  Serious: Yes (Hospitalization)
  Sender: FDA-Public Use
  Company Number: FR-WYE-G03617009

PATIENT
  Age: 70 Year
  Sex: Female

DRUGS (1)
  1. EFFEXOR [Suspect]
     Dosage: UNKNOWN
     Route: 048

REACTIONS (1)
  - VASCULITIS [None]
